FAERS Safety Report 9320406 (Version 3)
Quarter: 2013Q4

REPORT INFORMATION
  Report Type: Spontaneous
  Country: US (occurrence: US)
  Receive Date: 20130530
  Receipt Date: 20131119
  Transmission Date: 20140711
  Serious: Yes (Hospitalization)
  Sender: FDA-Public Use
  Company Number: US-B.I. PHARMACEUTICALS,INC./RIDGEFIELD-2013-BI-14571BP

PATIENT
  Sex: Female
  Weight: 140.61 kg

DRUGS (16)
  1. PRADAXA [Suspect]
     Indication: ATRIAL FIBRILLATION
     Dosage: 300 MG
     Route: 048
     Dates: start: 20110627, end: 20110705
  2. PRADAXA [Suspect]
     Indication: ANTICOAGULANT THERAPY
  3. SPIRONOLACTONE [Concomitant]
     Dosage: 25 MG
     Dates: start: 2010, end: 2013
  4. NASONEX [Concomitant]
     Route: 045
  5. SYMBICORT [Concomitant]
  6. ALBUTEROL [Concomitant]
     Route: 055
  7. COREG [Concomitant]
     Dosage: 25 MG
     Dates: start: 2004, end: 2013
  8. LOSARTAN [Concomitant]
     Dosage: 25 MG
  9. FLEXERIL [Concomitant]
     Dosage: 20 MG
  10. DIGOXIN [Concomitant]
     Dosage: 0.25 MG
  11. FLUOXETINE [Concomitant]
     Dosage: 20 MG
  12. KLONOPIN [Concomitant]
     Indication: ANXIETY
  13. VITAMIN B12 [Concomitant]
     Dosage: 2 MG
  14. TORSEMIDE [Concomitant]
  15. NORCO [Concomitant]
  16. PROMETHAZINE [Concomitant]
     Dates: start: 2009, end: 2013

REACTIONS (6)
  - Pericardial effusion [Unknown]
  - Inferior vena cava dilatation [Unknown]
  - Hepatic vein dilatation [Unknown]
  - Ascites [Unknown]
  - Cardiac tamponade [Unknown]
  - Contusion [Unknown]
